FAERS Safety Report 9775457 (Version 1)
Quarter: 2013Q4

REPORT INFORMATION
  Report Type: Spontaneous
  Country: IN (occurrence: None)
  Receive Date: 20131218
  Receipt Date: 20131218
  Transmission Date: 20140711
  Serious: Yes (Life-Threatening)
  Sender: FDA-Public Use
  Company Number: 2013P1021960

PATIENT
  Age: 38 Year
  Sex: Female

DRUGS (2)
  1. RANITIDINE [Suspect]
     Indication: PREMEDICATION
     Dosage: 50 MG; X1; IV
     Route: 030
  2. ONDANSETRON [Suspect]
     Dosage: 4 MG; X1; IV
     Route: 042

REACTIONS (4)
  - Unresponsive to stimuli [None]
  - Cardiac arrest [None]
  - Apnoea [None]
  - Maternal exposure during pregnancy [None]
